FAERS Safety Report 11212236 (Version 3)
Quarter: 2015Q3

REPORT INFORMATION
  Report Type: Spontaneous
  Country: US (occurrence: US)
  Receive Date: 20150623
  Receipt Date: 20150716
  Transmission Date: 20151125
  Serious: No
  Sender: FDA-Public Use
  Company Number: US-PFIZER INC-2015204380

PATIENT
  Age: 56 Year
  Sex: Female
  Weight: 73 kg

DRUGS (6)
  1. LYRICA [Suspect]
     Active Substance: PREGABALIN
     Indication: NEUROPATHY PERIPHERAL
  2. LYRICA [Suspect]
     Active Substance: PREGABALIN
     Indication: NEURALGIA
     Dosage: 75 MG, 2X/DAY
     Route: 048
  3. CYMBALTA [Concomitant]
     Active Substance: DULOXETINE HYDROCHLORIDE
     Indication: ANXIETY
  4. CYMBALTA [Concomitant]
     Active Substance: DULOXETINE HYDROCHLORIDE
     Indication: DEPRESSION
     Dosage: 60 MG, 2X/DAY
     Route: 048
  5. VITAMINS [Concomitant]
     Active Substance: VITAMINS
     Indication: SUPPLEMENTATION THERAPY
     Dosage: UNK
  6. LYRICA [Suspect]
     Active Substance: PREGABALIN
     Indication: PAIN

REACTIONS (3)
  - Product use issue [Recovering/Resolving]
  - Psoriasis [Recovering/Resolving]
  - Weight increased [Unknown]
